FAERS Safety Report 21512782 (Version 1)
Quarter: 2022Q4

REPORT INFORMATION
  Report Type: Spontaneous
  Country: US (occurrence: None)
  Receive Date: 20221026
  Receipt Date: 20221026
  Transmission Date: 20230113
  Serious: Yes (Other)
  Sender: FDA-Public Use
  Company Number: None

PATIENT
  Age: 7 Year
  Sex: Male
  Weight: 27.8 kg

DRUGS (1)
  1. FLUTICASONE PROPIONATE [Suspect]
     Active Substance: FLUTICASONE PROPIONATE
     Indication: Asthma
     Dosage: OTHER FREQUENCY : 2 PUFFS BID;?
     Route: 055
     Dates: start: 20221022, end: 20221023

REACTIONS (1)
  - Urticaria [None]

NARRATIVE: CASE EVENT DATE: 20221022
